FAERS Safety Report 14544775 (Version 5)
Quarter: 2023Q4

REPORT INFORMATION
  Report Type: Spontaneous
  Country: IT (occurrence: IT)
  Receive Date: 20180217
  Receipt Date: 20231208
  Transmission Date: 20240109
  Serious: Yes (Death, Life-Threatening, Hospitalization, Other)
  Sender: FDA-Public Use
  Company Number: IT-MLMSERVICE-20180129-1054803-1

PATIENT
  Age: 52 Year
  Sex: Male

DRUGS (11)
  1. GENTAMICIN [Suspect]
     Active Substance: GENTAMICIN
     Indication: Liver abscess
     Dosage: UNK
     Route: 065
  2. MEROPENEM [Suspect]
     Active Substance: MEROPENEM
     Indication: Liver abscess
     Dosage: UNK
     Route: 065
     Dates: start: 20110101
  3. MONTELUKAST [Suspect]
     Active Substance: MONTELUKAST SODIUM
     Indication: Asthma
     Dosage: 10 MILLIGRAM
     Route: 065
  4. MYCOPHENOLIC ACID [Suspect]
     Active Substance: MYCOPHENOLIC ACID
     Indication: Immunosuppression
     Dosage: UNK
     Route: 065
     Dates: start: 20110101
  5. BECLOMETHASONE DIPROPIONATE\FORMOTEROL FUMARATE [Suspect]
     Active Substance: BECLOMETHASONE DIPROPIONATE\FORMOTEROL FUMARATE
     Indication: Asthma
     Dosage: 824 MICROGRAM, ONCE A DAY
     Route: 065
  6. COLISTIN [Suspect]
     Active Substance: COLISTIN
     Indication: Liver abscess
     Dosage: UNK
     Route: 065
     Dates: start: 20110101
  7. CYCLOSPORINE [Suspect]
     Active Substance: CYCLOSPORINE
     Indication: Immunosuppression
     Dosage: UNK
     Route: 065
     Dates: start: 20110101
  8. METHOTREXATE [Suspect]
     Active Substance: METHOTREXATE
     Indication: Asthma
     Dosage: 15 MILLIGRAM, EVERY WEEK
     Route: 065
  9. METHYLPREDNISOLONE [Suspect]
     Active Substance: METHYLPREDNISOLONE
     Indication: Immunosuppression
     Dosage: 4 MILLIGRAM, EVERY OTHER DAY
     Route: 065
  10. METHYLPREDNISOLONE [Suspect]
     Active Substance: METHYLPREDNISOLONE
     Indication: Asthma
     Dosage: 25 MILLIGRAM
     Route: 048
     Dates: start: 2011
  11. OXYGEN [Suspect]
     Active Substance: OXYGEN
     Indication: Liver abscess
     Dosage: HYPERBARIC OXYGEN ()
     Route: 065

REACTIONS (6)
  - Septic shock [Fatal]
  - Klebsiella infection [Fatal]
  - Liver abscess [Fatal]
  - Peritonitis [Fatal]
  - Drug ineffective [Fatal]
  - Asthma [Recovered/Resolved]

NARRATIVE: CASE EVENT DATE: 20110101
